FAERS Safety Report 6781180-X (Version None)
Quarter: 2010Q2

REPORT INFORMATION
  Report Type: 
  Country: None (occurrence: None)
  Receive Date: 20100621
  Receipt Date: 20100611
  Transmission Date: 20101027
  Serious: Yes (Hospitalization, Other)
  Sender: FDA-Public Use
  Company Number: US-PFIZER INC-2010064919

PATIENT
  Sex: Male
  Weight: 65.76 kg

DRUGS (5)
  1. GEODON [Suspect]
     Indication: MAJOR DEPRESSION
     Dosage: 80 MG, 4X/DAY
     Route: 048
     Dates: start: 20090512
  2. GEODON [Suspect]
     Indication: GENERALISED ANXIETY DISORDER
     Dosage: 80MG TABLETS
     Route: 048
     Dates: start: 20100127, end: 20100127
  3. KLONOPIN [Suspect]
     Dosage: 2MG EVERY MORNING AND 0.5-1.5MG AT BEDTIME
  4. PRISTIQ [Concomitant]
     Dosage: 150 MG, 1X/DAY
  5. ROPINIROLE HYDROCHLORIDE [Concomitant]
     Dosage: 8 MG, UNK

REACTIONS (3)
  - ELECTROCARDIOGRAM QT PROLONGED [None]
  - OVERDOSE [None]
  - SUICIDE ATTEMPT [None]
